FAERS Safety Report 17543783 (Version 1)
Quarter: 2020Q1

REPORT INFORMATION
  Report Type: Spontaneous
  Country: CN (occurrence: CN)
  Receive Date: 20200316
  Receipt Date: 20200316
  Transmission Date: 20200409
  Serious: Yes (Other)
  Sender: FDA-Public Use
  Company Number: CN-ROCHE-2563071

PATIENT
  Age: 60 Year
  Sex: Female

DRUGS (21)
  1. KADCYLA [Suspect]
     Active Substance: ADO-TRASTUZUMAB EMTANSINE
     Indication: INVASIVE DUCTAL BREAST CARCINOMA
     Dosage: 9 TIMES
     Route: 041
     Dates: start: 20171128
  2. ETOPOSIDE. [Concomitant]
     Active Substance: ETOPOSIDE
     Indication: INVASIVE DUCTAL BREAST CARCINOMA
     Route: 048
     Dates: start: 201709
  3. HERCEPTIN [Suspect]
     Active Substance: TRASTUZUMAB
     Indication: INVASIVE DUCTAL BREAST CARCINOMA
     Route: 065
     Dates: start: 201210, end: 201305
  4. PERJETA [Suspect]
     Active Substance: PERTUZUMAB
     Indication: INVASIVE DUCTAL BREAST CARCINOMA
     Dosage: 2 CYCLES
     Route: 065
     Dates: start: 201806
  5. GEMCITABINE. [Concomitant]
     Active Substance: GEMCITABINE
     Route: 065
     Dates: end: 201412
  6. HERCEPTIN [Suspect]
     Active Substance: TRASTUZUMAB
     Route: 065
     Dates: end: 201412
  7. HERCEPTIN [Suspect]
     Active Substance: TRASTUZUMAB
     Dosage: 3 CYCLES
     Route: 065
  8. CAPECITABINE. [Concomitant]
     Active Substance: CAPECITABINE
     Indication: INVASIVE DUCTAL BREAST CARCINOMA
     Route: 048
     Dates: start: 201210, end: 201305
  9. DOCETAXEL. [Concomitant]
     Active Substance: DOCETAXEL
     Indication: INVASIVE DUCTAL BREAST CARCINOMA
     Route: 065
     Dates: start: 201305, end: 201312
  10. HERCEPTIN [Suspect]
     Active Substance: TRASTUZUMAB
     Route: 065
     Dates: start: 201305, end: 201312
  11. HERCEPTIN [Suspect]
     Active Substance: TRASTUZUMAB
     Dosage: 2 CYCLES
     Route: 065
     Dates: start: 201806
  12. AVASTIN [Suspect]
     Active Substance: BEVACIZUMAB
     Indication: BRAIN OEDEMA
     Route: 041
     Dates: start: 201709
  13. CISPLATIN. [Concomitant]
     Active Substance: CISPLATIN
     Indication: INVASIVE DUCTAL BREAST CARCINOMA
     Dosage: 4 CYCLES
     Route: 065
     Dates: start: 201312
  14. GEMCITABINE. [Concomitant]
     Active Substance: GEMCITABINE
     Indication: INVASIVE DUCTAL BREAST CARCINOMA
     Dosage: 4 CYCLES
     Route: 065
     Dates: start: 201312
  15. LAPATINIB [Concomitant]
     Active Substance: LAPATINIB
     Indication: INVASIVE DUCTAL BREAST CARCINOMA
     Dosage: 8 CYCLES
     Route: 065
     Dates: start: 201702
  16. GEMCITABINE. [Concomitant]
     Active Substance: GEMCITABINE
     Dosage: 2 CYCLES
     Route: 065
  17. PACLITAXEL. [Concomitant]
     Active Substance: PACLITAXEL
     Indication: INVASIVE DUCTAL BREAST CARCINOMA
     Dosage: 3 CYCLES
     Route: 065
  18. PYROTINIB [Concomitant]
     Active Substance: PYROTINIB
     Indication: INVASIVE DUCTAL BREAST CARCINOMA
     Dosage: 2 CYCLES
     Route: 065
  19. HERCEPTIN [Suspect]
     Active Substance: TRASTUZUMAB
     Dosage: 4 CYCLES
     Route: 065
     Dates: start: 201312
  20. HERCEPTIN [Suspect]
     Active Substance: TRASTUZUMAB
     Route: 065
     Dates: start: 201604
  21. VINORELBINE [Concomitant]
     Active Substance: VINORELBINE TARTRATE
     Indication: INVASIVE DUCTAL BREAST CARCINOMA
     Dosage: 8 CYCLES
     Route: 065
     Dates: start: 201702

REACTIONS (8)
  - Pulmonary toxicity [Unknown]
  - Platelet count decreased [Unknown]
  - Neurotoxicity [Unknown]
  - Oedema peripheral [Unknown]
  - Off label use [Unknown]
  - Cardiotoxicity [Unknown]
  - Intentional product use issue [Unknown]
  - Hepatotoxicity [Unknown]

NARRATIVE: CASE EVENT DATE: 201702
